FAERS Safety Report 13418482 (Version 4)
Quarter: 2017Q2

REPORT INFORMATION
  Report Type: Report from Study
  Country: US (occurrence: US)
  Receive Date: 20170406
  Receipt Date: 20170621
  Transmission Date: 20170830
  Serious: Yes (Hospitalization)
  Sender: FDA-Public Use
  Company Number: US-ACTELION-A-NJ2017-151967

PATIENT
  Age: 52 Year
  Sex: Female
  Weight: 102.4 kg

DRUGS (11)
  1. TRACLEER [Suspect]
     Active Substance: BOSENTAN
     Indication: PULMONARY ARTERIAL HYPERTENSION
     Dosage: 125 MG, BID
     Route: 048
     Dates: start: 20170204
  2. LITHIUM CARBON [Concomitant]
  3. CARBAMAZEPIN [Concomitant]
     Active Substance: CARBAMAZEPINE
  4. MAPROXEN [Concomitant]
  5. SPIRONOLACTONE. [Concomitant]
     Active Substance: SPIRONOLACTONE
  6. VENTAVIS [Suspect]
     Active Substance: ILOPROST
     Indication: PULMONARY ARTERIAL HYPERTENSION
     Dosage: 5 MCG, 6-9 X/DAY
     Route: 055
  7. PALIPERIDONE. [Concomitant]
     Active Substance: PALIPERIDONE
  8. PROPRANOLOL [Concomitant]
     Active Substance: PROPRANOLOL HYDROCHLORIDE
  9. METFORMIN [Concomitant]
     Active Substance: METFORMIN HYDROCHLORIDE
  10. ADCIRCA [Concomitant]
     Active Substance: TADALAFIL
  11. PAROXETINE. [Concomitant]
     Active Substance: PAROXETINE

REACTIONS (4)
  - Dyspnoea [Unknown]
  - Skin ulcer [Unknown]
  - Cellulitis [Unknown]
  - Infection [Not Recovered/Not Resolved]

NARRATIVE: CASE EVENT DATE: 20170307
